FAERS Safety Report 14664347 (Version 1)
Quarter: 2018Q1

REPORT INFORMATION
  Report Type: Report from Study
  Country: TR (occurrence: TR)
  Receive Date: 20180321
  Receipt Date: 20180321
  Transmission Date: 20180509
  Serious: Yes (Other)
  Sender: FDA-Public Use
  Company Number: TR-ALEXION PHARMACEUTICALS INC.-A201801005

PATIENT
  Age: 64 Year
  Sex: Female
  Weight: 102 kg

DRUGS (40)
  1. TRILEPTAL [Concomitant]
     Active Substance: OXCARBAZEPINE
     Indication: SEIZURE
     Dosage: 150 MG, BID
     Route: 048
     Dates: start: 20170118
  2. PREDNOL                            /00049601/ [Concomitant]
     Active Substance: METHYLPREDNISOLONE
     Dosage: 1000 MG, QD
     Route: 042
     Dates: start: 20171211, end: 20171221
  3. GLUCOSAMINE CHONDROITIN MSM [Concomitant]
     Indication: PROPHYLAXIS
     Dosage: 3000 MG, BID
     Route: 048
     Dates: start: 20170818
  4. AVIL                               /00085102/ [Concomitant]
     Indication: FLUSHING
     Dosage: 22.7 MG, PRN
     Route: 048
     Dates: start: 201707
  5. BENEXOL B12                        /00176001/ [Concomitant]
     Indication: VITAMIN SUPPLEMENTATION
     Dosage: 1 DF, QD
     Route: 048
     Dates: start: 2012
  6. EUTHYROX [Concomitant]
     Active Substance: LEVOTHYROXINE SODIUM
     Indication: HYPOTHYROIDISM
     Dosage: 100 MG, QD
     Route: 048
     Dates: start: 20161104
  7. PANTO                              /01263204/ [Concomitant]
     Indication: PROPHYLAXIS
     Dosage: 40 ML, BID
     Route: 048
     Dates: start: 20170102
  8. FORSTEO [Concomitant]
     Active Substance: TERIPARATIDE
     Indication: OSTEOPOROSIS
     Dosage: 0.25 MCG/MCL, QD
     Route: 058
     Dates: start: 20170210
  9. PIYELOSEPTYL [Concomitant]
     Active Substance: NITROFURANTOIN
     Indication: PROPHYLAXIS URINARY TRACT INFECTION
     Dosage: 100 MG, TID
     Route: 048
     Dates: start: 20170215
  10. VOLTAREN [Concomitant]
     Active Substance: DICLOFENAC SODIUM
     Indication: PAIN
     Dosage: 50 MG, PRN
     Route: 048
     Dates: start: 20170221
  11. COUMADIN [Concomitant]
     Active Substance: WARFARIN SODIUM
     Indication: ANTIPHOSPHOLIPID SYNDROME
     Dosage: 7.5 MG, QOD
     Route: 048
     Dates: start: 20171118, end: 20171122
  12. COUMADIN [Concomitant]
     Active Substance: WARFARIN SODIUM
     Dosage: 7.5 MG, QD
     Route: 048
     Dates: start: 20171124, end: 20171125
  13. COUMADIN [Concomitant]
     Active Substance: WARFARIN SODIUM
     Dosage: 7.5 MG, QOD
     Route: 048
     Dates: start: 20171127, end: 20171207
  14. NAPROSYN [Concomitant]
     Active Substance: NAPROXEN
     Indication: PAIN
     Dosage: 750 MG, SINGLE
     Route: 048
     Dates: start: 20171207, end: 20171207
  15. PREDNISOLONE. [Concomitant]
     Active Substance: PREDNISOLONE
     Dosage: 1000 MG, SINGLE
     Route: 042
     Dates: start: 20180103, end: 20180103
  16. ECULIZUMAB [Suspect]
     Active Substance: ECULIZUMAB
     Dosage: 240 ML, UNK
     Route: 042
     Dates: start: 20180216, end: 20180216
  17. PREDNOL                            /00049601/ [Concomitant]
     Active Substance: METHYLPREDNISOLONE
     Indication: NEUROMYELITIS OPTICA SPECTRUM DISORDER
     Dosage: 8 MG, QOD
     Route: 048
     Dates: start: 20170309
  18. CELLCEPT [Concomitant]
     Active Substance: MYCOPHENOLATE MOFETIL\MYCOPHENOLATE MOFETIL HYDROCHLORIDE
     Indication: NEUROMYELITIS OPTICA SPECTRUM DISORDER
     Dosage: 1000 MG, BID
     Route: 048
     Dates: start: 20170317
  19. LYRICA [Concomitant]
     Active Substance: PREGABALIN
     Indication: NEUROMYELITIS OPTICA SPECTRUM DISORDER
     Dosage: 150 MG, TID
     Route: 048
     Dates: start: 20171031
  20. PREDNISOLONE. [Concomitant]
     Active Substance: PREDNISOLONE
     Indication: NEUROMYELITIS OPTICA SPECTRUM DISORDER
     Dosage: 32 MG, BID
     Route: 048
     Dates: start: 20171220
  21. SPASMEX /00376202/ [Concomitant]
     Active Substance: TROSPIUM CHLORIDE
     Indication: NEUROMYELITIS OPTICA SPECTRUM DISORDER
     Dosage: 60 MG, BID
     Route: 048
     Dates: start: 20161103
  22. COUMADIN [Concomitant]
     Active Substance: WARFARIN SODIUM
     Dosage: 7.5 MG, QOD
     Route: 048
     Dates: start: 20171123, end: 20171123
  23. ECULIZUMAB [Suspect]
     Active Substance: ECULIZUMAB
     Indication: NEUROMYELITIS OPTICA SPECTRUM DISORDER
     Dosage: 240 ML, UNK
     Route: 042
     Dates: start: 20160331, end: 20160331
  24. CIPRALEX [Concomitant]
     Active Substance: ESCITALOPRAM OXALATE
     Indication: DEPRESSION
     Dosage: 10 MG, QD
     Route: 048
     Dates: start: 20170221
  25. PREDNOL                            /00049601/ [Concomitant]
     Active Substance: METHYLPREDNISOLONE
     Dosage: 16 MG, QOD
     Route: 048
     Dates: start: 20170310
  26. EXODERIL [Concomitant]
     Active Substance: NAFTIFINE HYDROCHLORIDE
     Indication: DERMATITIS
  27. COUMADIN [Concomitant]
     Active Substance: WARFARIN SODIUM
     Dosage: 10 MG, QOD
     Route: 048
     Dates: start: 20171126, end: 20171206
  28. COUMADIN [Concomitant]
     Active Substance: WARFARIN SODIUM
     Dosage: 32 MG, QOD
     Route: 048
     Dates: start: 20171219, end: 20171219
  29. ECULIZUMAB [Suspect]
     Active Substance: ECULIZUMAB
     Dosage: 240 ML, UNK
     Route: 042
     Dates: start: 20180104, end: 20180104
  30. VOLTAREN [Concomitant]
     Active Substance: DICLOFENAC SODIUM
     Dosage: 75 MG, SINGLE
     Route: 048
     Dates: start: 20171123, end: 20171123
  31. EXODERIL [Concomitant]
     Active Substance: NAFTIFINE HYDROCHLORIDE
     Indication: TINEA PEDIS
     Dosage: UNK, QD
     Route: 061
     Dates: start: 20170511
  32. COUMADIN [Concomitant]
     Active Substance: WARFARIN SODIUM
     Dosage: 10 MG, QOD
     Route: 048
     Dates: start: 20171119, end: 20171121
  33. COUMADIN [Concomitant]
     Active Substance: WARFARIN SODIUM
     Dosage: 10 MG, QOD
     Route: 048
     Dates: start: 20171208, end: 20171208
  34. COUMADIN [Concomitant]
     Active Substance: WARFARIN SODIUM
     Dosage: 7.5 MG, QOD
     Route: 048
     Dates: start: 20171209, end: 20171216
  35. COUMADIN [Concomitant]
     Active Substance: WARFARIN SODIUM
     Dosage: 7.5 MG, QOD
     Route: 048
     Dates: start: 20171218, end: 20171221
  36. PREDNOL                            /00049601/ [Concomitant]
     Active Substance: METHYLPREDNISOLONE
     Indication: PROPHYLAXIS
     Dosage: 1000 MG, QMONTH
     Route: 042
     Dates: start: 20170308
  37. CALCIMAX D3                        /00944201/ [Concomitant]
     Active Substance: CALCIUM CARBONATE\CHOLECALCIFEROL
     Indication: OSTEOPOROSIS
     Dosage: 1000 MG, QD
     Route: 048
     Dates: start: 20161219
  38. OTRIVINE [Concomitant]
     Active Substance: XYLOMETAZOLINE HYDROCHLORIDE
     Indication: UPPER-AIRWAY COUGH SYNDROME
     Dosage: 10 ML, PRN
     Route: 045
     Dates: start: 20171031
  39. COUMADIN [Concomitant]
     Active Substance: WARFARIN SODIUM
     Dosage: 5 MG, SINGLE
     Route: 048
     Dates: start: 20171210, end: 20171210
  40. ULCURAN [Concomitant]
     Indication: PROPHYLAXIS
     Dosage: 50 MG, SINGLE
     Route: 042
     Dates: start: 20180103, end: 20180103

REACTIONS (1)
  - Blood pressure increased [Recovered/Resolved]

NARRATIVE: CASE EVENT DATE: 20171219
